FAERS Safety Report 9502580 (Version 2)
Quarter: 2013Q3

REPORT INFORMATION
  Report Type: Spontaneous
  Country: US (occurrence: US)
  Receive Date: 20130906
  Receipt Date: 20130924
  Transmission Date: 20140515
  Serious: Yes (Other)
  Sender: FDA-Public Use
  Company Number: US-JNJFOC-20130815965

PATIENT
  Sex: Female
  Weight: 59.88 kg

DRUGS (5)
  1. STELARA [Suspect]
     Indication: PSORIASIS
     Route: 058
  2. STELARA [Suspect]
     Indication: PSORIASIS
     Route: 058
  3. STELARA [Suspect]
     Indication: PSORIASIS
     Route: 058
     Dates: start: 20130605, end: 20130605
  4. STELARA [Suspect]
     Indication: PSORIASIS
     Route: 058
     Dates: start: 20130703, end: 20130703
  5. DOXEPIN [Suspect]
     Indication: MENTAL DISORDER
     Route: 065
     Dates: start: 2013

REACTIONS (5)
  - Incoherent [Unknown]
  - Migraine [Recovered/Resolved]
  - Confusional state [Unknown]
  - Amnesia [Recovered/Resolved]
  - Blindness unilateral [Recovered/Resolved]
